FAERS Safety Report 8025602-5 (Version None)
Quarter: 2012Q1

REPORT INFORMATION
  Report Type: 
  Country: None (occurrence: None)
  Receive Date: 20120105
  Receipt Date: 20111229
  Transmission Date: 20120608
  Serious: Yes (Hospitalization, Other)
  Sender: FDA-Public Use
  Company Number: US-BAYER-2011-085360

PATIENT
  Age: 62 Year
  Sex: Female
  Weight: 91 kg

DRUGS (3)
  1. ASPIRIN [Suspect]
     Indication: PAIN IN EXTREMITY
     Dosage: 500 MG, ONCE
     Route: 048
     Dates: start: 20110901, end: 20110917
  2. ASPIRIN [Suspect]
     Indication: RESTLESS LEGS SYNDROME
     Dosage: 500 MG, ONCE
     Route: 048
     Dates: start: 20110911
  3. ANTIHISTAMINES [Concomitant]

REACTIONS (9)
  - DYSPHONIA [None]
  - COUGH [None]
  - ASTHMA [None]
  - FOREIGN BODY [None]
  - PHARYNGEAL OEDEMA [None]
  - THROAT IRRITATION [None]
  - RESPIRATORY TRACT INFLAMMATION [None]
  - INCREASED UPPER AIRWAY SECRETION [None]
  - DYSPNOEA [None]
